FAERS Safety Report 5749579-8 (Version None)
Quarter: 2008Q2

REPORT INFORMATION
  Report Type: 
  Country: None (occurrence: None)
  Receive Date: 20080521
  Receipt Date: 20080521
  Transmission Date: 20081010
  Serious: Yes (Hospitalization)
  Sender: FDA-Public Use
  Company Number: None

PATIENT
  Sex: Female
  Weight: 73.63 kg

DRUGS (1)
  1. TAXOTERE [Suspect]
     Dosage: 37 MG

REACTIONS (5)
  - DISEASE PROGRESSION [None]
  - HAEMATOCRIT DECREASED [None]
  - OVARIAN CANCER RECURRENT [None]
  - PLATELET COUNT DECREASED [None]
  - WHITE BLOOD CELL COUNT DECREASED [None]
